FAERS Safety Report 8536460-4 (Version None)
Quarter: 2012Q3

REPORT INFORMATION
  Report Type: 
  Country: None (occurrence: None)
  Receive Date: 20120725
  Receipt Date: 20120711
  Transmission Date: 20120928
  Serious: Yes (Other)
  Sender: FDA-Public Use
  Company Number: US-MYLANLABS-2012S1014481

PATIENT
  Age: 65 Year
  Sex: Male

DRUGS (2)
  1. AMIODARONE HYDROCHLORIDE [Suspect]
     Dosage: LOADING DOSAGE OF 400 MG DAILY FOR 1 WEEK; FOLLOWED BY MAINTENANCE DOSAGE OF 200MG DAILY
     Route: 065
  2. AMIODARONE HYDROCHLORIDE [Suspect]
     Dosage: MAINTENANCE DOSAGE OF 200MG DAILY
     Route: 065

REACTIONS (3)
  - LYMPHOID TISSUE HYPERPLASIA [None]
  - LUNG DISORDER [None]
  - HYPERTHYROIDISM [None]
